FAERS Safety Report 7511517-5 (Version None)
Quarter: 2011Q2

REPORT INFORMATION
  Report Type: 
  Country: None (occurrence: None)
  Receive Date: 20110531
  Receipt Date: 20110518
  Transmission Date: 20111010
  Serious: Yes (Other)
  Sender: FDA-Public Use
  Company Number: JP-BAYER-2011-046261

PATIENT
  Sex: Female

DRUGS (2)
  1. TELMISARTAN [Suspect]
  2. NEXAVAR [Suspect]

REACTIONS (1)
  - LIVER DISORDER [None]
